FAERS Safety Report 24919798 (Version 1)
Quarter: 2025Q1

REPORT INFORMATION
  Report Type: Report from Study
  Country: CA (occurrence: CA)
  Receive Date: 20250204
  Receipt Date: 20250204
  Transmission Date: 20250408
  Serious: No
  Sender: EXELIXIS
  Company Number: CA-IPSEN Group, Research and Development-2023-28478

PATIENT
  Sex: Female

DRUGS (10)
  1. CABOMETYX [Suspect]
     Active Substance: CABOZANTINIB S-MALATE
     Indication: Renal cell carcinoma
     Dosage: 40 MG, QD
     Route: 048
     Dates: start: 20221114
  2. JARDIANCE [Concomitant]
     Active Substance: EMPAGLIFLOZIN
  3. MAGNESIUM [Concomitant]
     Active Substance: MAGNESIUM
  4. DULOXETINE [Concomitant]
     Active Substance: DULOXETINE
  5. OLMESARTAN [Concomitant]
     Active Substance: OLMESARTAN
  6. ATORVASTATIN [Concomitant]
     Active Substance: ATORVASTATIN
  7. METFORMIN [Concomitant]
     Active Substance: METFORMIN HYDROCHLORIDE
  8. AMLODIPINE [Concomitant]
     Active Substance: AMLODIPINE BESYLATE
  9. PANTOPRAZOLE SODIUM [Concomitant]
     Active Substance: PANTOPRAZOLE SODIUM
  10. JAMP-ASA [Concomitant]

REACTIONS (2)
  - Cardiac disorder [Recovering/Resolving]
  - Drug intolerance [Unknown]
